FAERS Safety Report 24612259 (Version 2)
Quarter: 2024Q4

REPORT INFORMATION
  Report Type: Spontaneous
  Country: US (occurrence: US)
  Receive Date: 20241113
  Receipt Date: 20241127
  Transmission Date: 20250114
  Serious: Yes (Other)
  Sender: Unknown Manufacturer
  Company Number: US-MIRUM PHARMACEUTICALS, INC.-US-MIR-24-00972

PATIENT

DRUGS (1)
  1. LIVMARLI [Suspect]
     Active Substance: MARALIXIBAT CHLORIDE
     Indication: Cholangitis sclerosing
     Dosage: UNK
     Route: 065
     Dates: start: 202312

REACTIONS (13)
  - Cholestasis [Unknown]
  - Jaundice cholestatic [Not Recovered/Not Resolved]
  - Growth retardation [Unknown]
  - Bile duct stenosis [Unknown]
  - Transplant evaluation [Unknown]
  - Pruritus [Unknown]
  - Hypovitaminosis [Unknown]
  - Alanine aminotransferase increased [Unknown]
  - Aspartate aminotransferase increased [Unknown]
  - Blood bilirubin increased [Unknown]
  - Drug ineffective [Unknown]
  - Treatment noncompliance [Unknown]
  - Off label use [Unknown]
